FAERS Safety Report 18764217 (Version 2)
Quarter: 2022Q3

REPORT INFORMATION
  Report Type: Spontaneous
  Country: US (occurrence: US)
  Receive Date: 20210120
  Receipt Date: 20220929
  Transmission Date: 20221026
  Serious: Yes (Other)
  Sender: FDA-Public Use
  Company Number: US-SA-SAC20210116000456

PATIENT
  Age: 60 Year
  Sex: Female

DRUGS (1)
  1. ZANTAC [Suspect]
     Active Substance: RANITIDINE HYDROCHLORIDE
     Dosage: 75 MG, QD
     Dates: start: 201701, end: 201801

REACTIONS (3)
  - Gastrointestinal carcinoma [Recovering/Resolving]
  - Small intestine carcinoma stage I [Unknown]
  - Injury [Unknown]

NARRATIVE: CASE EVENT DATE: 20190401
